FAERS Safety Report 10218535 (Version 3)
Quarter: 2014Q2

REPORT INFORMATION
  Report Type: Spontaneous
  Country: JP (occurrence: JP)
  Receive Date: 20140605
  Receipt Date: 20140625
  Transmission Date: 20141212
  Serious: Yes (Hospitalization, Other)
  Sender: FDA-Public Use
  Company Number: JP-OTSUKA-JP-2014-14453

PATIENT
  Age: 79 Year
  Sex: Male

DRUGS (10)
  1. SAMSCA [Suspect]
     Indication: CARDIAC FAILURE CHRONIC
     Dosage: 3.75 MG MILLIGRAM(S), DAILY DOSE
     Route: 048
     Dates: start: 20140212, end: 20140318
  2. SAMSCA [Suspect]
     Route: 048
  3. PLAVIX [Suspect]
     Indication: PRODUCT USED FOR UNKNOWN INDICATION
     Dosage: 75 MG MILLIGRAM(S), DAILY DOSE
     Route: 048
     Dates: start: 20140101, end: 20140311
  4. NEXIUM CONTROL [Suspect]
     Indication: PRODUCT USED FOR UNKNOWN INDICATION
     Dosage: 20 MG MILLIGRAM(S), DAILY DOSE
     Route: 048
     Dates: start: 20140101, end: 20140320
  5. REBAMIPIDE [Concomitant]
     Dosage: 100 MG MILLIGRAM(S), TID
     Route: 048
     Dates: start: 20131231
  6. YODEL [Concomitant]
     Dosage: 160 MG MILLIGRAM(S), QD
     Route: 048
     Dates: start: 20131231
  7. SPIRONOLACTONE [Concomitant]
     Dosage: 25 MG MILLIGRAM(S), BID
     Route: 048
     Dates: start: 20131231
  8. DIART [Concomitant]
     Dosage: 60 MG MILLIGRAM(S), QD
     Route: 048
     Dates: start: 20131231
  9. FUROSEMIDE [Concomitant]
     Dosage: 40 MG MILLIGRAM(S), QD
     Route: 048
     Dates: start: 20131231
  10. PIMOBENDAN [Concomitant]
     Dosage: 1.25 MG MILLIGRAM(S), BID
     Route: 048
     Dates: start: 20140301

REACTIONS (2)
  - Interstitial lung disease [Recovering/Resolving]
  - Respiratory failure [Unknown]
